FAERS Safety Report 13390630 (Version 1)
Quarter: 2017Q1

REPORT INFORMATION
  Report Type: Spontaneous
  Country: US (occurrence: US)
  Receive Date: 20170330
  Receipt Date: 20170330
  Transmission Date: 20170429
  Serious: Yes (Hospitalization, Disabling)
  Sender: FDA-Public Use
  Company Number: None

PATIENT
  Age: 47 Year
  Sex: Female
  Weight: 60.3 kg

DRUGS (1)
  1. IBUPROFEN. [Suspect]
     Active Substance: IBUPROFEN
     Indication: BACK PAIN
     Dosage: ?          QUANTITY:1 TABLET(S);?EVERY 8 HOURS ORAL
     Route: 048
     Dates: start: 20161110, end: 20161216

REACTIONS (16)
  - Influenza like illness [None]
  - Oral mucosal blistering [None]
  - Conjunctivitis [None]
  - Fatigue [None]
  - Foot and mouth disease [None]
  - Myalgia [None]
  - Stevens-Johnson syndrome [None]
  - Somnolence [None]
  - Onycholysis [None]
  - Eye irritation [None]
  - Rash [None]
  - Malaise [None]
  - Skin discolouration [None]
  - Visual impairment [None]
  - Pyrexia [None]
  - Feeling cold [None]

NARRATIVE: CASE EVENT DATE: 20170103
